FAERS Safety Report 8582059-3 (Version None)
Quarter: 2012Q3

REPORT INFORMATION
  Report Type: 
  Country: None (occurrence: None)
  Receive Date: 20120809
  Receipt Date: 20120806
  Transmission Date: 20120928
  Serious: Yes (Hospitalization, Other)
  Sender: FDA-Public Use
  Company Number: JP-PFIZER INC-2012173985

PATIENT
  Sex: Female
  Weight: 2.564 kg

DRUGS (2)
  1. ALPRAZOLAM [Suspect]
     Dosage: 3.2 MG, 1X/DAY
     Route: 064
  2. PAXIL [Suspect]

REACTIONS (6)
  - SOMNOLENCE [None]
  - VENTRICULAR SEPTAL DEFECT [None]
  - MATERNAL EXPOSURE TIMING UNSPECIFIED [None]
  - TREMOR [None]
  - DRUG WITHDRAWAL SYNDROME NEONATAL [None]
  - APNOEA [None]
